FAERS Safety Report 4974203-1 (Version None)
Quarter: 2006Q2

REPORT INFORMATION
  Report Type: 
  Country: None (occurrence: None)
  Receive Date: 20060417
  Receipt Date: 20060405
  Transmission Date: 20061013
  Serious: Yes (Hospitalization)
  Sender: FDA-Public Use
  Company Number: US-MERCK-0604USA01061

PATIENT
  Age: 61 Year
  Sex: Female
  Weight: 73 kg

DRUGS (17)
  1. VIOXX [Suspect]
     Indication: ARTHRITIS
     Route: 048
     Dates: start: 20011231, end: 20040930
  2. VIOXX [Suspect]
     Route: 048
     Dates: start: 20020826
  3. VIOXX [Suspect]
     Indication: WHIPLASH INJURY
     Route: 048
     Dates: start: 20011231, end: 20040930
  4. VIOXX [Suspect]
     Route: 048
     Dates: start: 20020826
  5. PROTONIX [Concomitant]
     Route: 065
  6. SLOW FE [Concomitant]
     Route: 065
  7. PLAVIX [Concomitant]
     Route: 065
  8. ATENOLOL [Concomitant]
     Indication: SUPRAVENTRICULAR TACHYCARDIA
     Route: 065
  9. TRICOR [Concomitant]
     Indication: HYPERLIPIDAEMIA
     Route: 065
  10. DYAZIDE [Suspect]
     Route: 065
  11. ALBUTEROL [Concomitant]
     Route: 055
  12. ASPIRIN [Concomitant]
     Route: 065
  13. LIPITOR [Concomitant]
     Indication: HYPERLIPIDAEMIA
     Route: 065
  14. ZETIA [Concomitant]
     Route: 065
  15. CLARITIN [Concomitant]
     Indication: RHINITIS ALLERGIC
     Route: 065
  16. GERITOL COMPLETE TABLETS [Concomitant]
     Route: 065
  17. TENORMIN [Concomitant]
     Indication: SUPRAVENTRICULAR TACHYCARDIA
     Route: 065

REACTIONS (20)
  - ABDOMINAL HERNIA [None]
  - ANAEMIA [None]
  - AORTIC VALVE INCOMPETENCE [None]
  - APHASIA [None]
  - CHEST PAIN [None]
  - DECREASED APPETITE [None]
  - DYSPNOEA [None]
  - FATIGUE [None]
  - HEMIPARESIS [None]
  - HEPATIC ENZYME INCREASED [None]
  - HEPATIC STEATOSIS [None]
  - HYPOKALAEMIA [None]
  - HYPONATRAEMIA [None]
  - MENOPAUSE [None]
  - MERALGIA PARAESTHETICA [None]
  - OBESITY [None]
  - PANIC ATTACK [None]
  - REVERSIBLE ISCHAEMIC NEUROLOGICAL DEFICIT [None]
  - SMALL INTESTINAL OBSTRUCTION [None]
  - TRANSIENT ISCHAEMIC ATTACK [None]
